FAERS Safety Report 7771466-4 (Version None)
Quarter: 2011Q3

REPORT INFORMATION
  Report Type: 
  Country: None (occurrence: None)
  Receive Date: 20110922
  Receipt Date: 20100823
  Transmission Date: 20111222
  Serious: No
  Sender: FDA-Public Use
  Company Number: US-ASTRAZENECA-2010SE39568

PATIENT
  Sex: Female

DRUGS (4)
  1. SEROQUEL XR [Suspect]
     Indication: SCHIZOAFFECTIVE DISORDER
     Route: 048
  2. SEROQUEL XR [Suspect]
     Route: 048
     Dates: start: 20100801
  3. SEROQUEL XR [Suspect]
     Route: 048
     Dates: start: 20100801
  4. SEROQUEL XR [Suspect]
     Indication: DEMENTIA
     Route: 048

REACTIONS (2)
  - FALL [None]
  - SEDATION [None]
